FAERS Safety Report 11114671 (Version 2)
Quarter: 2015Q2

REPORT INFORMATION
  Report Type: Spontaneous
  Country: IT (occurrence: None)
  Receive Date: 20150512
  Receipt Date: 20150610
  Transmission Date: 20150821
  Serious: Yes (Hospitalization)
  Sender: FDA-Public Use
  Company Number: FK201502134

PATIENT
  Age: 68 Year
  Sex: Male
  Weight: 46 kg

DRUGS (1)
  1. OXALIPLATIN (MANUFACTURER UNKNOWN) (OXALIPLATIN) (OXALIPLATIN) [Suspect]
     Active Substance: OXALIPLATIN
     Indication: COLON CANCER
     Dosage: 180 MG, TOTAL
     Dates: start: 20150421

REACTIONS (5)
  - Bronchospasm [None]
  - Muscular weakness [None]
  - Paraesthesia [None]
  - Eyelid ptosis [None]
  - Hypertension [None]

NARRATIVE: CASE EVENT DATE: 20150421
